FAERS Safety Report 7444370-9 (Version None)
Quarter: 2011Q2

REPORT INFORMATION
  Report Type: 
  Country: None (occurrence: None)
  Receive Date: 20110427
  Receipt Date: 20110427
  Transmission Date: 20111010
  Serious: Yes (Other)
  Sender: FDA-Public Use
  Company Number: None

PATIENT
  Age: 71 Year
  Sex: Male
  Weight: 84 kg

DRUGS (1)
  1. PRADAXA [Suspect]
     Indication: ATRIAL FIBRILLATION
     Dosage: 150MG Q12H PO
     Route: 048
     Dates: start: 20110412, end: 20110412

REACTIONS (4)
  - PARAESTHESIA [None]
  - HALLUCINATION [None]
  - PAIN [None]
  - NECK PAIN [None]
